FAERS Safety Report 5128443-1 (Version None)
Quarter: 2006Q4

REPORT INFORMATION
  Report Type: 
  Country: None (occurrence: None)
  Receive Date: 20061011
  Receipt Date: 20061005
  Transmission Date: 20070319
  Serious: Yes (Other)
  Sender: FDA-Public Use
  Company Number: 2006US-03082

PATIENT
  Age: 15 Year
  Sex: Female

DRUGS (1)
  1. ISOTRETINOIN [Suspect]
     Dosage: 20 MG, QAM, UNK

REACTIONS (2)
  - ALANINE AMINOTRANSFERASE INCREASED [None]
  - SWEAT DISCOLOURATION [None]
